FAERS Safety Report 9743324 (Version 2)
Quarter: 2013Q4

REPORT INFORMATION
  Report Type: Spontaneous
  Country: US (occurrence: US)
  Receive Date: 20131210
  Receipt Date: 20131210
  Transmission Date: 20140711
  Serious: No
  Sender: FDA-Public Use
  Company Number: US-GILEAD-2009-0025620

PATIENT
  Age: 79 Year
  Sex: Female
  Weight: 74.5 kg

DRUGS (20)
  1. LETAIRIS [Suspect]
     Indication: PULMONARY ARTERIAL HYPERTENSION
     Route: 048
     Dates: start: 20090625, end: 20091123
  2. DARVOCET-N [Concomitant]
  3. ASPIRIN ADLT [Concomitant]
  4. VITAMIN B12 [Concomitant]
  5. VITAMIN B1 [Concomitant]
  6. FISH OIL [Concomitant]
  7. SPIRIVA [Concomitant]
  8. FOLIC ACID [Concomitant]
  9. VITAMIN E [Concomitant]
  10. ADVAIR DISKU [Concomitant]
  11. ZANTAC [Concomitant]
  12. ALBUTEROL [Concomitant]
  13. CARDIZEM CD [Concomitant]
  14. SYNTHROID [Concomitant]
  15. LIPITOR [Concomitant]
  16. LASIX [Concomitant]
  17. CELEBREX [Concomitant]
  18. PLAQUENIL [Concomitant]
  19. COZAAR [Concomitant]
  20. FOSAMAX [Concomitant]

REACTIONS (4)
  - Oedema [Unknown]
  - Constipation [Unknown]
  - Nasal congestion [Unknown]
  - Dyspnoea [Unknown]
